FAERS Safety Report 4535287-8 (Version None)
Quarter: 2004Q4

REPORT INFORMATION
  Report Type: 
  Country: None (occurrence: None)
  Receive Date: 20041214
  Receipt Date: 20040921
  Transmission Date: 20050328
  Serious: No
  Sender: FDA-Public Use
  Company Number: 2004237153US

PATIENT
  Sex: Female

DRUGS (1)
  1. BEXTRA [Suspect]
     Indication: ARTHRALGIA
     Dosage: 10 MG, QD, ORAL
     Route: 048
     Dates: start: 20040920

REACTIONS (7)
  - ARTHRALGIA [None]
  - DYSPNOEA [None]
  - MUSCLE SPASMS [None]
  - MUSCLE TIGHTNESS [None]
  - PAIN IN EXTREMITY [None]
  - PRURITUS [None]
  - PSYCHOMOTOR HYPERACTIVITY [None]
